FAERS Safety Report 9551863 (Version 1)
Quarter: 2013Q3

REPORT INFORMATION
  Report Type: Spontaneous
  Country: US (occurrence: US)
  Receive Date: 20130925
  Receipt Date: 20130925
  Transmission Date: 20140515
  Serious: No
  Sender: FDA-Public Use
  Company Number: US-MYLANLABS-2013S1011534

PATIENT
  Sex: Male

DRUGS (1)
  1. CYSTAGON CAPSULES [Suspect]
     Indication: CYSTINOSIS

REACTIONS (3)
  - Insomnia [Unknown]
  - Fatigue [Unknown]
  - Skin odour abnormal [Unknown]
